FAERS Safety Report 15076895 (Version 1)
Quarter: 2018Q2

REPORT INFORMATION
  Report Type: Spontaneous
  Country: DE (occurrence: DE)
  Receive Date: 20180627
  Receipt Date: 20180627
  Transmission Date: 20180711
  Serious: Yes (Other)
  Sender: FDA-Public Use
  Company Number: PHHY2018DE029353

PATIENT
  Age: 58 Year
  Sex: Male

DRUGS (2)
  1. SIMBRINZA [Suspect]
     Active Substance: BRIMONIDINE TARTRATE\BRINZOLAMIDE
     Indication: PRODUCT USED FOR UNKNOWN INDICATION
     Route: 047
  2. TRAVOPROST. [Suspect]
     Active Substance: TRAVOPROST
     Indication: INTRAOCULAR PRESSURE INCREASED
     Dosage: UNK UNK, QD
     Route: 047
     Dates: start: 201409

REACTIONS (5)
  - Eye irritation [Unknown]
  - Growth of eyelashes [Unknown]
  - Concomitant disease aggravated [Unknown]
  - Skin discolouration [Unknown]
  - Keratoconus [Unknown]

NARRATIVE: CASE EVENT DATE: 2014
